FAERS Safety Report 7728447-6 (Version None)
Quarter: 2011Q3

REPORT INFORMATION
  Report Type: 
  Country: None (occurrence: None)
  Receive Date: 20110905
  Receipt Date: 20110826
  Transmission Date: 20111222
  Serious: Yes (Other)
  Sender: FDA-Public Use
  Company Number: PHHY2011CA72286

PATIENT
  Sex: Female

DRUGS (2)
  1. GILENYA [Suspect]
     Indication: RELAPSING-REMITTING MULTIPLE SCLEROSIS
     Dosage: 0.5 MG, DAILY
     Route: 048
     Dates: start: 20110809
  2. LIPITOR [Concomitant]
     Dosage: UNK UKN, UNK

REACTIONS (3)
  - BLOOD PRESSURE DECREASED [None]
  - HYPERHIDROSIS [None]
  - HEART RATE DECREASED [None]
